FAERS Safety Report 8916485 (Version 2)
Quarter: 2012Q4

REPORT INFORMATION
  Report Type: 
  Country: US (occurrence: US)
  Receive Date: 20121120
  Receipt Date: 20121212
  Transmission Date: 20130627
  Serious: Yes (Life-Threatening, Hospitalization)
  Sender: FDA-Public Use
  Company Number: US-BAYER-2012-117111

PATIENT
  Age: 84 Year
  Sex: Female
  Weight: 70.7 kg

DRUGS (13)
  1. XARELTO [Suspect]
     Indication: CEREBROVASCULAR ACCIDENT PROPHYLAXIS
     Dosage: 20 mg, QD
     Route: 048
  2. XARELTO [Interacting]
     Indication: ATRIAL FIBRILLATION
  3. ACETYLSALICYLIC ACID({=100 MG) [Interacting]
  4. FISH OIL [Concomitant]
     Dosage: 1 DF, TID
  5. MULTIVITAMINS [Concomitant]
  6. NIACIN [Concomitant]
  7. NEXIUM [Concomitant]
  8. LISINOPRIL [Concomitant]
  9. FUROSEMIDE [Concomitant]
  10. CITALOPRAM [Concomitant]
  11. METOPROLOL [Concomitant]
  12. ROSUVASTATIN [Concomitant]
  13. ASA [Concomitant]

REACTIONS (6)
  - Haemorrhagic stroke [Recovering/Resolving]
  - Paraesthesia [Recovering/Resolving]
  - Asthenia [Recovering/Resolving]
  - Fall [Recovering/Resolving]
  - Partial seizures [Recovering/Resolving]
  - Incorrect dose administered [Recovered/Resolved]
